FAERS Safety Report 21599697 (Version 2)
Quarter: 2022Q4

REPORT INFORMATION
  Report Type: Spontaneous
  Country: GH (occurrence: None)
  Receive Date: 20221115
  Receipt Date: 20221116
  Transmission Date: 20230113
  Serious: Yes (Other)
  Sender: FDA-Public Use
  Company Number: GH-ROCHE-3219224

PATIENT
  Age: 62 Year
  Sex: Female

DRUGS (1)
  1. ALECENSA [Suspect]
     Active Substance: ALECTINIB HYDROCHLORIDE
     Indication: Product used for unknown indication
     Route: 065

REACTIONS (1)
  - Pulmonary hypertension [Unknown]
